FAERS Safety Report 21872982 (Version 2)
Quarter: 2023Q1

REPORT INFORMATION
  Report Type: Spontaneous
  Country: CA (occurrence: CA)
  Receive Date: 20230117
  Receipt Date: 20230301
  Transmission Date: 20230418
  Serious: Yes (Other)
  Sender: FDA-Public Use
  Company Number: CA-PFIZER INC-202200245855

PATIENT
  Age: 58 Year
  Sex: Male
  Weight: 106.59 kg

DRUGS (3)
  1. RUXIENCE [Suspect]
     Active Substance: RITUXIMAB-PVVR
     Indication: Interstitial lung disease
     Dosage: 1000 MG, AT 0 AND 2 WEEKS
     Route: 042
     Dates: start: 20220728
  2. RUXIENCE [Suspect]
     Active Substance: RITUXIMAB-PVVR
     Dosage: 1000 MG, AT 0 AND 2 WEEKS
     Route: 042
     Dates: start: 20220812
  3. RUXIENCE [Suspect]
     Active Substance: RITUXIMAB-PVVR
     Dosage: 1000 MG, AT 0 AND 2 WEEKS
     Route: 042
     Dates: start: 20230214

REACTIONS (2)
  - Lung disorder [Unknown]
  - Off label use [Unknown]
